FAERS Safety Report 8869181 (Version 1)
Quarter: 2012Q4

REPORT INFORMATION
  Report Type: Spontaneous
  Country: US (occurrence: None)
  Receive Date: 20121025
  Receipt Date: 20121025
  Transmission Date: 20130627
  Serious: No
  Sender: FDA-Public Use
  Company Number: None

PATIENT
  Age: 84 Year
  Sex: Female

DRUGS (8)
  1. MEGESTROL [Concomitant]
  2. TRIAMTERENE/HCTZ [Concomitant]
  3. MTOPROLOL TARTRATE [Concomitant]
  4. SIMVASTATIN [Concomitant]
  5. WARFARIN [Concomitant]
  6. HYDROCODONE/APAP [Concomitant]
  7. OMEPRAZOLE [Concomitant]
  8. REVLIMID [Suspect]
     Indication: MULTIPLE MYELOMA
     Dosage: Revlimid 10 mg every other day orally
     Route: 048
     Dates: start: 201109

REACTIONS (1)
  - Neutropenia [None]
